FAERS Safety Report 5139817-7 (Version None)
Quarter: 2006Q4

REPORT INFORMATION
  Report Type: 
  Country: None (occurrence: None)
  Receive Date: 20061026
  Receipt Date: 20061026
  Transmission Date: 20070319
  Serious: Yes (Disabling)
  Sender: FDA-Public Use
  Company Number: None

PATIENT
  Age: 79 Year
  Sex: Female
  Weight: 63.5036 kg

DRUGS (1)
  1. AMIODARONE HCL [Suspect]
     Indication: VENTRICULAR ARRHYTHMIA
     Dosage: UNSURE   UNSURE   PO
     Route: 048
     Dates: start: 19990401, end: 20000401

REACTIONS (6)
  - HYPERTENSION [None]
  - NEUROPATHY PERIPHERAL [None]
  - OPTIC NEUROPATHY [None]
  - RENAL FAILURE [None]
  - TREMOR [None]
  - VISUAL ACUITY REDUCED [None]
